FAERS Safety Report 9780952 (Version 1)
Quarter: 2013Q4

REPORT INFORMATION
  Report Type: Report from Study
  Country: CA (occurrence: CA)
  Receive Date: 20131224
  Receipt Date: 20131224
  Transmission Date: 20140711
  Serious: Yes (Death)
  Sender: FDA-Public Use
  Company Number: PHHY2013CA151099

PATIENT
  Age: 58 Year
  Sex: Male

DRUGS (1)
  1. SANDOSTATIN LAR [Suspect]
     Indication: COLORECTAL CANCER METASTATIC
     Dosage: 10 MG, EVERY 4 WEEKS
     Route: 030
     Dates: start: 20131204

REACTIONS (1)
  - Death [Fatal]
